FAERS Safety Report 26096799 (Version 1)
Quarter: 2025Q4

REPORT INFORMATION
  Report Type: Spontaneous
  Country: US (occurrence: US)
  Receive Date: 20251127
  Receipt Date: 20251127
  Transmission Date: 20260117
  Serious: Yes (Other)
  Sender: Unknown Manufacturer
  Company Number: US-LENZ THERAPEUTICS, INC.-2025LTS000228

PATIENT
  Age: 50 Year
  Sex: Female

DRUGS (1)
  1. VIZZ [Suspect]
     Active Substance: ACECLIDINE HYDROCHLORIDE
     Indication: Presbyopia
     Dosage: 0.4 MILLILITER, QD
     Route: 047

REACTIONS (3)
  - Cholinergic syndrome [Recovered/Resolved]
  - Abdominal discomfort [Recovered/Resolved]
  - Miosis [Recovered/Resolved]
